FAERS Safety Report 7276054-4 (Version None)
Quarter: 2011Q1

REPORT INFORMATION
  Report Type: 
  Country: None (occurrence: None)
  Receive Date: 20110204
  Receipt Date: 20110131
  Transmission Date: 20110831
  Serious: Yes (Other)
  Sender: FDA-Public Use
  Company Number: B0698085A

PATIENT
  Age: 19 Year
  Sex: Female

DRUGS (7)
  1. ENANTYUM [Suspect]
     Dosage: 25MG THREE TIMES PER DAY
     Route: 048
     Dates: start: 20101111, end: 20101111
  2. AUGMENTIN '125' [Suspect]
     Dosage: 1TAB THREE TIMES PER DAY
     Route: 048
     Dates: start: 20101008, end: 20101008
  3. DALACIN [Suspect]
     Route: 061
     Dates: start: 20101008, end: 20101008
  4. PARACETAMOL [Suspect]
     Dosage: 1G THREE TIMES PER DAY
     Route: 048
     Dates: start: 20101008, end: 20101008
  5. NORGESTIMATE [Suspect]
     Dosage: 1TAB PER DAY
     Route: 048
     Dates: start: 20101008, end: 20101008
  6. TRAMADOL HYDROCHLORIDE AND ACETAMINOPHEN [Suspect]
     Route: 048
     Dates: start: 20101111, end: 20101111
  7. BUSCAPINA [Suspect]
     Dosage: 10MG THREE TIMES PER DAY
     Route: 048
     Dates: start: 20101123, end: 20101123

REACTIONS (1)
  - PSEUDOMEMBRANOUS COLITIS [None]
